FAERS Safety Report 25236051 (Version 1)
Quarter: 2025Q2

REPORT INFORMATION
  Report Type: Spontaneous
  Country: US (occurrence: US)
  Receive Date: 20250424
  Receipt Date: 20250424
  Transmission Date: 20250717
  Serious: No
  Sender: BIOMARIN
  Company Number: US-SA-2025SA106346

PATIENT

DRUGS (1)
  1. LARONIDASE [Suspect]
     Active Substance: LARONIDASE
     Indication: Mucopolysaccharidosis I
     Dosage: 23.2 UNK(UNITS NOT REPORTED), QW
     Route: 042
     Dates: start: 200607

REACTIONS (3)
  - Ear disorder [Recovered/Resolved]
  - Ear tube removal [Unknown]
  - Ear tube insertion [Unknown]

NARRATIVE: CASE EVENT DATE: 20250101
